FAERS Safety Report 10751391 (Version 1)
Quarter: 2015Q1

REPORT INFORMATION
  Report Type: Spontaneous
  Country: US (occurrence: US)
  Receive Date: 20150130
  Receipt Date: 20150130
  Transmission Date: 20150721
  Serious: No
  Sender: FDA-Public Use
  Company Number: US-009507513-0909USA04864

PATIENT
  Sex: Female

DRUGS (3)
  1. MK-9378 [Concomitant]
     Active Substance: UNSPECIFIED INGREDIENT
  2. JANUVIA [Suspect]
     Active Substance: SITAGLIPTIN PHOSPHATE
     Indication: DIABETES MELLITUS
     Dosage: 100 MG, QD
     Route: 048
     Dates: end: 20090926
  3. COZAAR [Concomitant]
     Active Substance: LOSARTAN POTASSIUM

REACTIONS (4)
  - Erythema [Recovered/Resolved]
  - Rash [Not Recovered/Not Resolved]
  - Blister [Not Recovered/Not Resolved]
  - Pruritus [Recovered/Resolved]

NARRATIVE: CASE EVENT DATE: 200907
